FAERS Safety Report 7222736-X (Version None)
Quarter: 2011Q1

REPORT INFORMATION
  Report Type: 
  Country: None (occurrence: None)
  Receive Date: 20110106
  Receipt Date: 20110106
  Transmission Date: 20110831
  Serious: No
  Sender: FDA-Public Use
  Company Number: None

PATIENT
  Age: 57 Year
  Sex: Female
  Weight: 81.6475 kg

DRUGS (3)
  1. CYMBALTA [Suspect]
     Indication: PAIN
     Dosage: 60 MG ONCE DAILY PO
     Route: 048
     Dates: start: 20060415, end: 20060915
  2. CYMBALTA [Suspect]
     Indication: FIBROMYALGIA
     Dosage: 60 MG ONCE DAILY PO
     Route: 048
     Dates: start: 20060415, end: 20060915
  3. CYMBALTA [Suspect]
     Indication: DEPRESSION
     Dosage: 60 MG ONCE DAILY PO
     Route: 048
     Dates: start: 20060415, end: 20060915

REACTIONS (1)
  - MACULAR DEGENERATION [None]
